FAERS Safety Report 4293809-9 (Version None)
Quarter: 2004Q1

REPORT INFORMATION
  Report Type: 
  Country: None (occurrence: None)
  Receive Date: 20040210
  Receipt Date: 20040128
  Transmission Date: 20041129
  Serious: Yes (Congenital Anomaly, Other)
  Sender: FDA-Public Use
  Company Number: 2004197148IL

PATIENT
  Age: 28 Year
  Sex: Female

DRUGS (3)
  1. ROGAINE [Suspect]
     Indication: ALOPECIA
     Dosage: TOPICAL
     Route: 061
     Dates: start: 19980101
  2. TRIMETHOPRIM-SULFAMETHOXAZOLE [Suspect]
     Dosage: 2 TABLETS, QD, ORAL
     Route: 048
  3. ERYTHROMYCIN [Suspect]
     Dosage: 0.5 G, QID, ORAL
     Route: 048

REACTIONS (9)
  - ABORTION INDUCED [None]
  - CAUDAL REGRESSION SYNDROME [None]
  - COMPLICATIONS OF MATERNAL EXPOSURE TO THERAPEUTIC DRUGS [None]
  - COUGH [None]
  - FOETAL DISORDER [None]
  - MATERNAL DRUGS AFFECTING FOETUS [None]
  - PHARYNGOLARYNGEAL PAIN [None]
  - PYREXIA [None]
  - UPPER RESPIRATORY TRACT INFECTION [None]
